FAERS Safety Report 8877121 (Version 1)
Quarter: 2012Q4

REPORT INFORMATION
  Report Type: 
  Country: CA (occurrence: CA)
  Receive Date: 20121030
  Receipt Date: 20121030
  Transmission Date: 20130627
  Serious: Yes (Hospitalization, Disabling)
  Sender: FDA-Public Use
  Company Number: CA-B.I. PHARMACEUTICALS,INC./RIDGEFIELD-2012-CN-02187CN

PATIENT
  Age: 56 Year
  Sex: Female
  Weight: 83 kg

DRUGS (14)
  1. PRADAX [Suspect]
     Dosage: 300 mg
     Route: 048
  2. ATENOLOL, BP [Concomitant]
     Route: 048
  3. CRESTOR [Concomitant]
     Route: 048
  4. HCTZ [Concomitant]
     Route: 048
  5. JANUVIA [Concomitant]
     Route: 048
  6. LEVOTHYROXINE [Concomitant]
     Route: 048
  7. LORAZEPAM [Concomitant]
     Route: 048
  8. METFORMIN [Concomitant]
     Route: 048
  9. OLMETEC [Concomitant]
     Route: 048
  10. PANTOPRAZOLE [Concomitant]
     Route: 048
  11. PERINDOPRIL [Concomitant]
     Route: 048
  12. PHENYTOIN [Concomitant]
     Route: 048
  13. PIOGLITAZONE [Concomitant]
     Route: 048
  14. TERAZOSIN [Concomitant]
     Route: 048

REACTIONS (1)
  - Cerebrovascular accident [Not Recovered/Not Resolved]
